FAERS Safety Report 15987751 (Version 3)
Quarter: 2019Q2

REPORT INFORMATION
  Report Type: Report from Study
  Country: None (occurrence: AU)
  Receive Date: 20190220
  Receipt Date: 20190625
  Transmission Date: 20190711
  Serious: Yes (Other)
  Sender: FDA-Public Use
  Company Number: AU-ABBVIE-19P-008-2666844-00

PATIENT
  Age: 77 Year
  Sex: Male

DRUGS (9)
  1. DUODOPA [Suspect]
     Active Substance: CARBIDOPA\LEVODOPA
     Indication: PARKINSON^S DISEASE
     Dosage: INDUCTION: LCIG/CLES  MD: 15ML CD: 1ML/HR. ED: 1ML
     Route: 050
     Dates: start: 20170322, end: 20170327
  2. DUODOPA [Suspect]
     Active Substance: CARBIDOPA\LEVODOPA
     Dosage: LCIG/CLES  MD: 15ML CD: 4ML/HR. ED: 2ML
     Route: 050
     Dates: start: 20180413, end: 20181012
  3. SIFROL [Concomitant]
     Active Substance: PRAMIPEXOLE
     Indication: PARKINSON^S DISEASE
     Route: 048
     Dates: start: 2011
  4. KINSON [Concomitant]
     Active Substance: CARBIDOPA\LEVODOPA
     Indication: PARKINSON^S DISEASE
     Dosage: 100/25 MG
     Route: 048
     Dates: start: 2011
  5. DUODOPA [Suspect]
     Active Substance: CARBIDOPA\LEVODOPA
     Dosage: LCIG/CLES  MD: 15ML CD: 2.8ML/HR. ED: 1ML
     Route: 050
     Dates: start: 20170712, end: 20171011
  6. DUODOPA [Suspect]
     Active Substance: CARBIDOPA\LEVODOPA
     Dosage: LCIG/CLES  MD: 15ML CD: 3.7ML/HR. ED: 1.5ML
     Route: 050
     Dates: start: 20181012
  7. CHOLECALCIFEROL [Concomitant]
     Active Substance: CHOLECALCIFEROL
     Indication: ROUTINE HEALTH MAINTENANCE
     Route: 048
     Dates: start: 2019
  8. DUODOPA [Suspect]
     Active Substance: CARBIDOPA\LEVODOPA
     Dosage: LCIG/CLES  MD: 15ML CD: 1ML/HR. ED: 1ML
     Route: 050
     Dates: start: 20170327, end: 20170712
  9. DUODOPA [Suspect]
     Active Substance: CARBIDOPA\LEVODOPA
     Dosage: LCIG/CLES  MD: 15ML CD: 3.3ML/HR. ED: 1.5ML
     Route: 050
     Dates: start: 20171011, end: 20180413

REACTIONS (5)
  - Osteoarthritis [Not Recovered/Not Resolved]
  - Device issue [Recovered/Resolved]
  - Device occlusion [Recovered/Resolved]
  - Hypertension [Not Recovered/Not Resolved]
  - Hyperlipidaemia [Not Recovered/Not Resolved]

NARRATIVE: CASE EVENT DATE: 2018
